FAERS Safety Report 25741514 (Version 4)
Quarter: 2025Q4

REPORT INFORMATION
  Report Type: Report from Study
  Country: US (occurrence: US)
  Receive Date: 20250829
  Receipt Date: 20251218
  Transmission Date: 20260119
  Serious: Yes (Death, Other)
  Sender: ABBVIE
  Company Number: US-ABBVIE-6434808

PATIENT
  Age: 84 Year
  Sex: Male

DRUGS (3)
  1. SKYRIZI [Suspect]
     Active Substance: RISANKIZUMAB-RZAA
     Indication: Crohn^s disease
     Dosage: FORM STRENGTH: 600 MILLIGRAM
     Route: 058
     Dates: start: 20250111, end: 20251102
  2. SKYRIZI [Suspect]
     Active Substance: RISANKIZUMAB-RZAA
     Dosage: FORM STRENGTH: 600 MILLIGRAM
     Route: 058
     Dates: start: 202502, end: 20251116
  3. SKYRIZI [Suspect]
     Active Substance: RISANKIZUMAB-RZAA
     Indication: Crohn^s disease
     Dosage: FORM STRENGTH: 600 MILLIGRAM
     Route: 042

REACTIONS (2)
  - Skin angiosarcoma [Fatal]
  - Adenocarcinoma [Fatal]

NARRATIVE: CASE EVENT DATE: 20250601
